FAERS Safety Report 8902446 (Version 1)
Quarter: 2012Q4

REPORT INFORMATION
  Report Type: 
  Country: US (occurrence: US)
  Receive Date: 20121112
  Receipt Date: 20121112
  Transmission Date: 20130627
  Serious: Yes (Death)
  Sender: FDA-Public Use
  Company Number: US-ASTRAZENECA-2012SE85168

PATIENT
  Sex: Female

DRUGS (2)
  1. CAPRELSA [Suspect]
     Indication: THYROID CANCER
     Route: 048
     Dates: start: 2012, end: 2012
  2. CAPRELSA [Suspect]
     Indication: THYROID CANCER
     Route: 048
     Dates: start: 2012

REACTIONS (2)
  - Neoplasm progression [Fatal]
  - Fatigue [Recovered/Resolved]
